FAERS Safety Report 17325937 (Version 3)
Quarter: 2020Q1

REPORT INFORMATION
  Report Type: Spontaneous
  Country: US (occurrence: US)
  Receive Date: 20200127
  Receipt Date: 20200218
  Transmission Date: 20200409
  Serious: No
  Sender: FDA-Public Use
  Company Number: US-PFIZER INC-2020035593

PATIENT
  Age: 58 Year

DRUGS (1)
  1. PRISTIQ EXTENDED-RELEASE [Suspect]
     Active Substance: DESVENLAFAXINE SUCCINATE
     Dosage: 200 MG, DAILY(50 MG TABLET 4 TABLETS BY MOUTH DAILY)
     Route: 048

REACTIONS (2)
  - Hypoacusis [Unknown]
  - Nervousness [Unknown]
